FAERS Safety Report 5307949-6 (Version None)
Quarter: 2007Q2

REPORT INFORMATION
  Report Type: 
  Country: None (occurrence: None)
  Receive Date: 20070426
  Receipt Date: 20070420
  Transmission Date: 20071010
  Serious: Yes (Life-Threatening, Hospitalization)
  Sender: FDA-Public Use
  Company Number: 2007UW07795

PATIENT
  Age: 6 Year
  Sex: Male

DRUGS (2)
  1. IRESSA [Suspect]
     Indication: NEUROBLASTOMA
     Route: 048
     Dates: start: 20070409
  2. IRINOTECAN HCL [Suspect]
     Dates: start: 20070409

REACTIONS (1)
  - FEBRILE NEUTROPENIA [None]
